FAERS Safety Report 6568452-9 (Version None)
Quarter: 2010Q1

REPORT INFORMATION
  Report Type: 
  Country: None (occurrence: None)
  Receive Date: 20100203
  Receipt Date: 20100129
  Transmission Date: 20100710
  Serious: Yes (Hospitalization)
  Sender: FDA-Public Use
  Company Number: A0842148A

PATIENT
  Age: 69 Year
  Sex: Female
  Weight: 106 kg

DRUGS (12)
  1. MELPHALAN HYDROCHLORIDE [Suspect]
     Indication: AMYLOIDOSIS
     Dosage: 7MGM2 CYCLIC
     Route: 048
     Dates: start: 20090430
  2. VELCADE [Suspect]
     Indication: AMYLOIDOSIS
     Dosage: 1MGM2 CYCLIC
     Route: 042
     Dates: start: 20090430
  3. DEXAMETHASONE [Suspect]
     Indication: AMYLOIDOSIS
     Dosage: 20MG CYCLIC
     Route: 048
     Dates: start: 20090430
  4. COREG [Concomitant]
  5. LASIX [Concomitant]
  6. LANTUS [Concomitant]
  7. NOVOLOG [Concomitant]
  8. AMARYL [Concomitant]
  9. ACYCLOVIR [Concomitant]
     Dates: start: 20091007
  10. ATIVAN [Concomitant]
  11. OMEPRAZOLE [Concomitant]
  12. ALDACTONE [Concomitant]

REACTIONS (4)
  - ASTHENIA [None]
  - CELLULITIS [None]
  - DYSPNOEA [None]
  - ERYTHEMA [None]
